FAERS Safety Report 8772849 (Version 2)
Quarter: 2012Q4

REPORT INFORMATION
  Report Type: 
  Country: US (occurrence: US)
  Receive Date: 20120907
  Receipt Date: 20121005
  Transmission Date: 20130627
  Serious: Yes (Death)
  Sender: FDA-Public Use
  Company Number: US-PFIZER INC-2012218951

PATIENT
  Age: 52 Year
  Sex: Male

DRUGS (5)
  1. INLYTA [Suspect]
     Indication: METASTATIC RENAL CELL CARCINOMA
     Dosage: 5 mg, 2x/day
     Route: 048
     Dates: start: 20120717, end: 20120904
  2. INLYTA [Suspect]
     Indication: RENAL CELL CARCINOMA
  3. LEVOTHYROXINE [Concomitant]
     Dosage: UNK
  4. ATIVAN [Concomitant]
     Dosage: UNK
  5. PROTONIX [Concomitant]
     Dosage: UNK

REACTIONS (3)
  - Disease progression [Fatal]
  - Metastatic renal cell carcinoma [Fatal]
  - Gastrointestinal perforation [Fatal]
